FAERS Safety Report 9171302 (Version 2)
Quarter: 2013Q1

REPORT INFORMATION
  Report Type: Report from Study
  Country: CA (occurrence: CA)
  Receive Date: 20130319
  Receipt Date: 20130321
  Transmission Date: 20140127
  Serious: Yes (Other)
  Sender: FDA-Public Use
  Company Number: CA-ROCHE-1168786

PATIENT
  Age: 42 Year
  Sex: Female
  Weight: 44.9 kg

DRUGS (5)
  1. AVASTIN [Suspect]
     Indication: GLIOBLASTOMA
     Route: 042
     Dates: start: 20121116, end: 20130307
  2. DILANTIN [Concomitant]
  3. EPIVAL [Concomitant]
  4. DEXAMETHASONE [Concomitant]
  5. RANITIDINE [Concomitant]

REACTIONS (3)
  - Dehydration [Unknown]
  - Disease progression [Not Recovered/Not Resolved]
  - Drug effect decreased [Unknown]
